FAERS Safety Report 9162508 (Version 1)
Quarter: 2013Q1

REPORT INFORMATION
  Report Type: Spontaneous
  Country: US (occurrence: None)
  Receive Date: 20130221
  Receipt Date: 20130221
  Transmission Date: 20140127
  Serious: Yes (Disabling)
  Sender: FDA-Public Use
  Company Number: PR-AE13-000110

PATIENT
  Sex: Male

DRUGS (1)
  1. DEBROX [Suspect]
     Indication: CERUMEN IMPACTION
     Dosage: 3 DROPS, ONE APPL, OTIC?
     Dates: start: 201201

REACTIONS (3)
  - Hearing impaired [None]
  - Pain [None]
  - Tympanic membrane perforation [None]
